FAERS Safety Report 25517591 (Version 1)
Quarter: 2025Q3

REPORT INFORMATION
  Report Type: Spontaneous
  Country: GB (occurrence: GB)
  Receive Date: 20250704
  Receipt Date: 20250704
  Transmission Date: 20251020
  Serious: Yes (Other)
  Sender: RANBAXY
  Company Number: GB-SUN PHARMACEUTICAL INDUSTRIES LTD-2025RR-514069

PATIENT
  Age: 25 Year
  Sex: Male
  Weight: 81 kg

DRUGS (2)
  1. SERTRALINE [Suspect]
     Active Substance: SERTRALINE HYDROCHLORIDE
     Indication: Depression
     Dosage: 50 MILLIGRAM, DAILY
     Route: 065
     Dates: start: 20250414
  2. DIAZEPAM [Concomitant]
     Active Substance: DIAZEPAM
     Indication: Adverse drug reaction
     Route: 065
     Dates: start: 20250423, end: 20250523

REACTIONS (4)
  - Medication error [Unknown]
  - Confusional state [Not Recovered/Not Resolved]
  - Soliloquy [Not Recovered/Not Resolved]
  - Hypomania [Not Recovered/Not Resolved]

NARRATIVE: CASE EVENT DATE: 20250506
